FAERS Safety Report 7314264-8 (Version None)
Quarter: 2011Q1

REPORT INFORMATION
  Report Type: 
  Country: None (occurrence: None)
  Receive Date: 20110225
  Receipt Date: 20100629
  Transmission Date: 20110831
  Serious: No
  Sender: FDA-Public Use
  Company Number: US-MYLANLABS-2010S1011402

PATIENT
  Age: 18 Year
  Sex: Female

DRUGS (5)
  1. CLARAVIS [Suspect]
     Route: 048
  2. CLARAVIS [Suspect]
     Route: 048
  3. SOLODYN [Concomitant]
  4. AMNESTEEM [Suspect]
     Indication: ACNE
     Route: 048
     Dates: end: 20100624
  5. CONTRACEPTIVE [Concomitant]

REACTIONS (3)
  - WEIGHT INCREASED [None]
  - IRRITABILITY [None]
  - MOOD ALTERED [None]
